FAERS Safety Report 17311339 (Version 1)
Quarter: 2020Q1

REPORT INFORMATION
  Report Type: Spontaneous
  Country: US (occurrence: US)
  Receive Date: 20200123
  Receipt Date: 20200123
  Transmission Date: 20200409
  Serious: No
  Sender: FDA-Public Use
  Company Number: US-ROCHE-2399444

PATIENT
  Age: 40 Year
  Sex: Male
  Weight: 79 kg

DRUGS (2)
  1. RITUXAN [Suspect]
     Active Substance: RITUXIMAB
     Indication: PRODUCT USED FOR UNKNOWN INDICATION
     Dosage: 3 DOSES 2 WEEKS APART
     Route: 042
     Dates: start: 20190506
  2. RITUXAN [Suspect]
     Active Substance: RITUXIMAB
     Route: 042
     Dates: start: 20190508, end: 20190508

REACTIONS (5)
  - Rash [Unknown]
  - Sensory disturbance [Recovered/Resolved]
  - Pruritus [Recovered/Resolved]
  - Throat irritation [Unknown]
  - Urticaria [Recovered/Resolved]

NARRATIVE: CASE EVENT DATE: 20190508
